FAERS Safety Report 21459821 (Version 1)
Quarter: 2022Q4

REPORT INFORMATION
  Report Type: Other
  Country: NL (occurrence: NL)
  Receive Date: 20221014
  Receipt Date: 20221014
  Transmission Date: 20230113
  Serious: Yes (Other)
  Sender: FDA-Public Use
  Company Number: NL-LANTHEUS-LMI-2022-01200

PATIENT
  Sex: Male

DRUGS (5)
  1. PERFLUTREN [Suspect]
     Active Substance: PERFLUTREN
     Indication: Thrombolysis
     Dosage: 1.5 MILLILITRE (UNKNOWN AMOUNT OF LUMINITY PREPARED IN 50 ML NORMAL SALINE)
     Route: 042
     Dates: start: 20220728, end: 20220728
  2. ASPIRIN [Concomitant]
     Active Substance: ASPIRIN
     Indication: Thrombocytopenia
     Dosage: 80 MILLIGRAM 1DD
  3. ATORVASTATIN [Concomitant]
     Active Substance: ATORVASTATIN
     Indication: Product used for unknown indication
     Dosage: 80 MILLIGRAM 1DD AN
  4. PANTOPRAZOLE SODIUM [Concomitant]
     Active Substance: PANTOPRAZOLE SODIUM
     Indication: Product used for unknown indication
     Dosage: 40 MILLIGRAM 1DD
  5. TICAGRELOR [Concomitant]
     Active Substance: TICAGRELOR
     Indication: Product used for unknown indication
     Dosage: 90 MILLIGRAM 2DD

REACTIONS (3)
  - Coronary artery dissection [Recovered/Resolved]
  - Electrocardiogram ST segment elevation [Recovered/Resolved]
  - Chest pain [Recovered/Resolved]

NARRATIVE: CASE EVENT DATE: 20220728
